FAERS Safety Report 4921239-2 (Version None)
Quarter: 2006Q1

REPORT INFORMATION
  Report Type: 
  Country: None (occurrence: None)
  Receive Date: 20060224
  Receipt Date: 20060213
  Transmission Date: 20060701
  Serious: Yes (Hospitalization)
  Sender: FDA-Public Use
  Company Number: PHHO2006GB02746

PATIENT
  Age: 25 Year
  Sex: Female

DRUGS (3)
  1. SYNTOCINON [Suspect]
     Indication: LABOUR INDUCTION
     Dosage: NOT REPORTED
     Dates: start: 20060115
  2. PROSTIN VR PEDIATRIC [Concomitant]
     Indication: LABOUR INDUCTION
     Dosage: 3 MG, ONCE/SINGLE
     Route: 067
     Dates: start: 20060115, end: 20060115
  3. PROSTIN VR PEDIATRIC [Concomitant]
     Dosage: 3 MG, BID
     Route: 067
     Dates: start: 20060114, end: 20060114

REACTIONS (3)
  - ARTIFICIAL RUPTURE OF MEMBRANES [None]
  - CAESAREAN SECTION [None]
  - DRUG EXPOSURE DURING PREGNANCY [None]
